FAERS Safety Report 9522643 (Version 1)
Quarter: 2013Q1

REPORT INFORMATION
  Report Type: Spontaneous
  Country: US (occurrence: None)
  Receive Date: 20130305
  Receipt Date: 20130305
  Transmission Date: 20140127
  Serious: Yes (Other)
  Sender: FDA-Public Use
  Company Number: 163-21880-12070631

PATIENT
  Age: 71 Year
  Sex: Female

DRUGS (12)
  1. REVLIMID (LENALIDOMIDE) (CAPSULES) [Suspect]
     Indication: PLASMA CELL MYELOMA
     Dosage: 25 MG, 1 IN 1 D, PO
     Route: 048
     Dates: start: 20080423, end: 2009
  2. DEXAMETHASONE (DEXAMETHASONE) (UNKNOWN) [Concomitant]
  3. AVELOX (MOXIFLOXACIN HYDROCHLORIDE) (UNKNOWN)? [Concomitant]
  4. CEFPROZIL (CEFPROZIL) (UNKNOWN) [Concomitant]
  5. CEPHALEXIN (CEFALEXIN) (UNKNOWN) [Concomitant]
  6. CLINDAMYCINN (CLINDAMYCIN) (UNKNOWN) [Concomitant]
  7. AZITHROMYCIN (AZITHROMCYIN) (UNKNOWN) [Concomitant]
  8. VENTOLIN (SALBUTOMOL) (UNKNOWN) [Concomitant]
  9. WARFARIN (WARFARIN) (UNKNOWN) [Concomitant]
  10. CALCIUM (CALCIUM) (UNKNOWN) [Concomitant]
  11. ATROVENT (IPRATROPIUM BROMIDE) (UNKNOWN) [Concomitant]
  12. CHERATUSSIN AC (CHERATUSSIN AC) (UNKNOWN) [Concomitant]

REACTIONS (1)
  - Thrombosis [None]
